FAERS Safety Report 19275536 (Version 1)
Quarter: 2021Q2

REPORT INFORMATION
  Report Type: Spontaneous
  Country: ES (occurrence: ES)
  Receive Date: 20210519
  Receipt Date: 20210519
  Transmission Date: 20210717
  Serious: Yes (Other)
  Sender: FDA-Public Use
  Company Number: ES-UCBSA-2021011909

PATIENT
  Age: 33 Year
  Sex: Female

DRUGS (2)
  1. ZONEGRAN [Interacting]
     Active Substance: ZONISAMIDE
     Indication: EPILEPSY
     Dosage: 50 MILLIGRAM, ONCE DAILY (QD)
     Route: 048
     Dates: start: 202007
  2. BRIVIACT [Suspect]
     Active Substance: BRIVARACETAM
     Indication: EPILEPSY
     Dosage: 100 MILLIGRAM, UNK
     Route: 048
     Dates: start: 202002

REACTIONS (3)
  - Ovarian disorder [Not Recovered/Not Resolved]
  - Heavy menstrual bleeding [Not Recovered/Not Resolved]
  - Drug interaction [Unknown]

NARRATIVE: CASE EVENT DATE: 202008
